FAERS Safety Report 8366322-7 (Version None)
Quarter: 2012Q2

REPORT INFORMATION
  Report Type: 
  Country: None (occurrence: None)
  Receive Date: 20120517
  Receipt Date: 20120515
  Transmission Date: 20120825
  Serious: Yes (Hospitalization, Other)
  Sender: FDA-Public Use
  Company Number: PHFR2012GB002729

PATIENT
  Sex: Female

DRUGS (9)
  1. ZOMETA [Suspect]
     Indication: MULTIPLE MYELOMA
     Dosage: UNK
  2. DIGOXIN [Concomitant]
     Dosage: 125 MG, UNK
     Route: 048
  3. ANTIBIOTICS [Concomitant]
     Dosage: UNK
  4. ZOMETA [Suspect]
     Dosage: 3.5 MG, UNK
  5. OXYCODONE HCL [Concomitant]
     Dosage: 10 MG, UNK
     Route: 048
  6. ZOMETA [Suspect]
     Dosage: 4 MG, QMO
     Route: 041
     Dates: start: 20120411
  7. CITALOPRAM HYDROBROMIDE [Concomitant]
     Dosage: 40 MG, UNK
     Route: 048
  8. BISOPROLOL FUMARATE [Concomitant]
     Dosage: 2.5 MG, UNK
     Route: 048
  9. CAL-SUP [Concomitant]
     Dosage: 2 TAB
     Route: 048

REACTIONS (6)
  - MENTAL DISORDER [None]
  - DEPRESSED MOOD [None]
  - CONFUSIONAL STATE [None]
  - HYPOCALCAEMIA [None]
  - APHASIA [None]
  - INFECTION [None]
